FAERS Safety Report 4846044-7 (Version None)
Quarter: 2005Q4

REPORT INFORMATION
  Report Type: 
  Country: None (occurrence: None)
  Receive Date: 20051130
  Receipt Date: 20051121
  Transmission Date: 20060501
  Serious: Yes (Life-Threatening, Hospitalization)
  Sender: FDA-Public Use
  Company Number: DEWYE149017NOV05

PATIENT
  Age: 70 Year
  Sex: Female

DRUGS (2)
  1. GEMTUZUMAB OZOGAMICIN (GEMTUZUMAB OZOGAMICIN, INJECTION) [Suspect]
     Dosage: 12.18 MG
     Dates: start: 20051110
  2. RAMIPRIL [Concomitant]

REACTIONS (1)
  - MYOCARDIAL INFARCTION [None]
